FAERS Safety Report 5049059-1 (Version None)
Quarter: 2006Q3

REPORT INFORMATION
  Report Type: 
  Country: None (occurrence: None)
  Receive Date: 20060712
  Receipt Date: 20060301
  Transmission Date: 20061208
  Serious: No
  Sender: FDA-Public Use
  Company Number: US-GLAXOSMITHKLINE-A0595736A

PATIENT
  Age: 39 Year
  Sex: Female

DRUGS (3)
  1. IMITREX [Suspect]
     Indication: MIGRAINE
     Dosage: 100MG AS REQUIRED
     Route: 048
  2. AMITRIPTYLINE HCL [Concomitant]
  3. EXCEDRIN (MIGRAINE) [Concomitant]

REACTIONS (1)
  - HEADACHE [None]
